FAERS Safety Report 21788443 (Version 2)
Quarter: 2023Q1

REPORT INFORMATION
  Report Type: Other
  Country: PT (occurrence: None)
  Receive Date: 20221228
  Receipt Date: 20230205
  Transmission Date: 20230418
  Serious: Yes (Hospitalization, Other)
  Sender: FDA-Public Use
  Company Number: PT-ROCHE-3188470

PATIENT
  Age: 70 Year
  Sex: Male
  Weight: 68 kg

DRUGS (3)
  1. GLOFITAMAB [Suspect]
     Active Substance: GLOFITAMAB
     Indication: Diffuse large B-cell lymphoma
     Dosage: ON 27/SEP/2022, RECEIVED MOST RECENT DOSE OF GLOFITAMAB PRIOR TO EVENT ONSET DATE.
     Route: 042
     Dates: start: 20220920, end: 20220920
  2. GLOFITAMAB [Suspect]
     Active Substance: GLOFITAMAB
     Route: 042
     Dates: start: 20220920
  3. CEFTRIAXONE [Concomitant]
     Active Substance: CEFTRIAXONE
     Indication: Pyrexia
     Route: 042
     Dates: start: 20220921

REACTIONS (2)
  - Cytokine release syndrome [Recovered/Resolved]
  - Neutropenia [Recovered/Resolved]

NARRATIVE: CASE EVENT DATE: 20220921
